FAERS Safety Report 6807529-7 (Version None)
Quarter: 2010Q2

REPORT INFORMATION
  Report Type: 
  Country: None (occurrence: None)
  Receive Date: 20100629
  Receipt Date: 20081023
  Transmission Date: 20101027
  Serious: No
  Sender: FDA-Public Use
  Company Number: US-PFIZER INC-2008089507

PATIENT
  Sex: Male
  Weight: 86.18 kg

DRUGS (7)
  1. XANAX [Suspect]
     Dates: start: 20080101
  2. PLAQUENIL [Suspect]
     Indication: MIXED CONNECTIVE TISSUE DISEASE
     Route: 048
     Dates: start: 20030101, end: 20080815
  3. CLONAZEPAM [Concomitant]
     Dates: end: 20080101
  4. LORAZEPAM [Concomitant]
     Indication: INSOMNIA
     Route: 048
     Dates: start: 20080801, end: 20080909
  5. RABEPRAZOLE SODIUM [Concomitant]
     Indication: GASTROOESOPHAGEAL REFLUX DISEASE
     Route: 048
     Dates: start: 20080801, end: 20080909
  6. PAROXETINE HCL [Concomitant]
     Indication: DEPRESSION
     Route: 048
     Dates: start: 20031001
  7. AZATHIOPRINE [Concomitant]
     Indication: MIXED CONNECTIVE TISSUE DISEASE
     Dates: start: 20030101

REACTIONS (2)
  - EAR DISCOMFORT [None]
  - TINNITUS [None]
